FAERS Safety Report 18292327 (Version 2)
Quarter: 2020Q4

REPORT INFORMATION
  Report Type: Spontaneous
  Country: ES (occurrence: ES)
  Receive Date: 20200922
  Receipt Date: 20201031
  Transmission Date: 20210113
  Serious: Yes (Other)
  Sender: FDA-Public Use
  Company Number: ES-AUROBINDO-AUR-APL-2020-044568

PATIENT
  Age: 71 Year
  Sex: Male
  Weight: 79.4 kg

DRUGS (10)
  1. 5 FU [Suspect]
     Active Substance: FLUOROURACIL
     Dosage: 4600 MILLIGRAM ,2 WEEK (Q2WK )
     Route: 042
     Dates: start: 20190424
  2. OXALIPLATIN. [Suspect]
     Active Substance: OXALIPLATIN
     Dosage: 170 MILLIGRAM, 2 WEEK Q2WK
     Route: 042
  3. 5 FU [Suspect]
     Active Substance: FLUOROURACIL
     Dosage: 780 MILLIGRAM, 2 WEEK (Q2WK )
     Route: 040
  4. 5 FU [Suspect]
     Active Substance: FLUOROURACIL
     Indication: COLORECTAL CANCER
     Dosage: 3600 MILLIGRAM (2 WEEK) (Q2WK )
     Route: 040
     Dates: start: 20190424
  5. 5 FU [Suspect]
     Active Substance: FLUOROURACIL
     Dosage: 4700 MILLIGRAM, 2 WEEK (Q2WK )
     Route: 042
  6. PANITUMUMAB [Suspect]
     Active Substance: PANITUMUMAB
     Dosage: 510 MILLIGRAM, 2 WEEK (Q2WK)
     Route: 042
     Dates: start: 20200803
  7. FOLINIC ACID [Concomitant]
     Active Substance: LEUCOVORIN
     Indication: COLORECTAL CANCER
     Dosage: 750 MILLIGRAM (2 WEEK) (Q2WK )
     Route: 042
     Dates: start: 20190424
  8. OXALIPLATIN. [Suspect]
     Active Substance: OXALIPLATIN
     Indication: COLORECTAL CANCER
     Dosage: 160 MILLIGRAM, 2 WEEK ( Q2WK)
     Route: 042
     Dates: start: 20190424, end: 20200708
  9. FOLINIC ACID [Concomitant]
     Active Substance: LEUCOVORIN
     Dosage: 780 MILLIGRAM (2 WEEK) (Q2WK )
     Route: 042
  10. PANITUMUMAB [Suspect]
     Active Substance: PANITUMUMAB
     Indication: COLORECTAL CANCER
     Dosage: 510 MILLIGRAM, 2 WEEK (Q2WK)
     Route: 042
     Dates: start: 20190424, end: 20200708

REACTIONS (3)
  - Neutropenia [Recovered/Resolved]
  - Mucosal inflammation [Recovered/Resolved]
  - Diarrhoea [Recovered/Resolved]

NARRATIVE: CASE EVENT DATE: 20200709
